FAERS Safety Report 7000761-1 (Version None)
Quarter: 2010Q3

REPORT INFORMATION
  Report Type: 
  Country: None (occurrence: None)
  Receive Date: 20100920
  Receipt Date: 20091103
  Transmission Date: 20110219
  Serious: No
  Sender: FDA-Public Use
  Company Number: US-ASTRAZENECA-2009SE17928

PATIENT
  Age: 36 Year
  Sex: Female
  Weight: 149.7 kg

DRUGS (9)
  1. SEROQUEL [Suspect]
     Indication: MANIA
     Route: 048
     Dates: start: 20030101, end: 20090101
  2. ABILIFY [Concomitant]
  3. RISPERDAL [Concomitant]
     Dates: start: 20021003
  4. ZYPREXA [Concomitant]
     Dates: start: 20031204
  5. TOPAMAX [Concomitant]
     Dates: start: 20031201
  6. TRAZODONE HCL [Concomitant]
     Dates: start: 20031204
  7. LITHIUM [Concomitant]
     Dates: start: 20021003
  8. KLONOPIN [Concomitant]
     Dates: start: 20090422
  9. LEXAPRO [Concomitant]

REACTIONS (5)
  - BLOOD CHOLESTEROL INCREASED [None]
  - BLOOD TRIGLYCERIDES INCREASED [None]
  - HYPERLIPIDAEMIA [None]
  - OBESITY [None]
  - TYPE 1 DIABETES MELLITUS [None]
